FAERS Safety Report 15414834 (Version 1)
Quarter: 2018Q3

REPORT INFORMATION
  Report Type: Spontaneous
  Country: GB (occurrence: GB)
  Receive Date: 20180921
  Receipt Date: 20180921
  Transmission Date: 20181010
  Serious: Yes (Death, Other)
  Sender: FDA-Public Use
  Company Number: GB-PURDUE-GBR-2018-0059579

PATIENT
  Age: 85 Year
  Sex: Female

DRUGS (1)
  1. BUPRENORPHINE. [Suspect]
     Active Substance: BUPRENORPHINE
     Indication: ANALGESIC THERAPY
     Dosage: 2 PATCH, UNK
     Route: 062

REACTIONS (5)
  - Toxicity to various agents [Fatal]
  - Confusional state [Unknown]
  - Pneumonia [Unknown]
  - Incorrect drug administration duration [Unknown]
  - Respiratory failure [Fatal]
